FAERS Safety Report 14199094 (Version 2)
Quarter: 2017Q4

REPORT INFORMATION
  Report Type: Spontaneous
  Country: DE (occurrence: DE)
  Receive Date: 20171117
  Receipt Date: 20171208
  Transmission Date: 20180321
  Serious: Yes (Life-Threatening, Hospitalization)
  Sender: FDA-Public Use
  Company Number: US-ASTRAZENECA-2017SF17106

PATIENT
  Age: 108 Day
  Sex: Male
  Weight: 4 kg

DRUGS (2)
  1. SYNAGIS [Suspect]
     Active Substance: PALIVIZUMAB
     Indication: ANTIVIRAL PROPHYLAXIS
     Dosage: 50.0MG UNKNOWN
     Route: 030
     Dates: start: 20171102
  2. VITAMIN D [Concomitant]
     Active Substance: CHOLECALCIFEROL
     Indication: PRODUCT USED FOR UNKNOWN INDICATION
     Dosage: 500 IE1X DAY

REACTIONS (4)
  - Apparent life threatening event [Not Recovered/Not Resolved]
  - Resuscitation [Recovered/Resolved]
  - Enterovirus infection [Unknown]
  - Apnoea [Unknown]

NARRATIVE: CASE EVENT DATE: 20171102
